FAERS Safety Report 9046385 (Version 1)
Quarter: 2013Q1

REPORT INFORMATION
  Report Type: Spontaneous
  Country: KR (occurrence: KR)
  Receive Date: 20130201
  Receipt Date: 20130201
  Transmission Date: 20140127
  Serious: Yes (Other)
  Sender: FDA-Public Use
  Company Number: KR-JNJFOC-20130115659

PATIENT
  Age: 71 None
  Sex: Male

DRUGS (11)
  1. FINIBAX [Suspect]
     Indication: PNEUMONIA
     Route: 042
     Dates: start: 20130116
  2. FINIBAX [Suspect]
     Indication: PNEUMONIA
     Route: 042
     Dates: start: 20130114, end: 20130116
  3. SOLU-MEDROL [Concomitant]
     Route: 042
     Dates: start: 20130115
  4. GASTER [Concomitant]
     Route: 042
     Dates: start: 20130112
  5. VANCOMYCIN HYDROCHLORIDE [Concomitant]
     Route: 042
     Dates: start: 20130113
  6. TAMIPOOL [Concomitant]
     Route: 042
     Dates: start: 20130112
  7. HERBEN [Concomitant]
     Route: 042
     Dates: start: 20130113, end: 20130116
  8. MUCOSTEN [Concomitant]
     Route: 042
     Dates: start: 20130112
  9. DILID [Concomitant]
     Route: 042
     Dates: start: 20130115
  10. ULTIVA [Concomitant]
     Route: 042
     Dates: start: 20130113
  11. PROPOFOL [Concomitant]
     Dosage: PREFILLED SYRINGE
     Route: 042
     Dates: start: 20130116

REACTIONS (1)
  - Pancytopenia [Unknown]
